FAERS Safety Report 7113397-9 (Version None)
Quarter: 2010Q4

REPORT INFORMATION
  Report Type: 
  Country: None (occurrence: None)
  Receive Date: 20101119
  Receipt Date: 20101115
  Transmission Date: 20110411
  Serious: Yes (Death)
  Sender: FDA-Public Use
  Company Number: PHHY2010US78095

PATIENT
  Sex: Male
  Weight: 79.819 kg

DRUGS (1)
  1. EXJADE [Suspect]
     Indication: IRON METABOLISM DISORDER
     Dosage: 2250 MG DAILY
     Route: 048
     Dates: start: 20090930

REACTIONS (1)
  - DEATH [None]
